APPROVED DRUG PRODUCT: NORGESTIMATE AND ETHINYL ESTRADIOL
Active Ingredient: ETHINYL ESTRADIOL; NORGESTIMATE
Strength: 0.035MG,0.035MG,0.035MG;0.18MG,0.215MG,0.25MG
Dosage Form/Route: TABLET;ORAL-28
Application: A201897 | Product #001
Applicant: XIROMED LLC
Approved: Jan 27, 2016 | RLD: No | RS: No | Type: DISCN